FAERS Safety Report 24824262 (Version 2)
Quarter: 2025Q1

REPORT INFORMATION
  Report Type: Spontaneous
  Country: CA (occurrence: CA)
  Receive Date: 20250109
  Receipt Date: 20250307
  Transmission Date: 20250408
  Serious: Yes (Other)
  Sender: CELLTRION
  Company Number: CA-PFIZER INC-202400086251

PATIENT

DRUGS (5)
  1. INFLECTRA [Suspect]
     Active Substance: INFLIXIMAB-DYYB
     Indication: Uveitis
     Route: 042
     Dates: start: 20240820
  2. INFLECTRA [Suspect]
     Active Substance: INFLIXIMAB-DYYB
     Route: 042
     Dates: start: 20241002
  3. INFLECTRA [Suspect]
     Active Substance: INFLIXIMAB-DYYB
  4. PREDNISONE [Concomitant]
     Active Substance: PREDNISONE
  5. COLCHICINE [Concomitant]
     Active Substance: COLCHICINE

REACTIONS (3)
  - Pericarditis [Recovered/Resolved]
  - Off label use [Unknown]
  - Drug effective for unapproved indication [Unknown]

NARRATIVE: CASE EVENT DATE: 20240101
